FAERS Safety Report 12132861 (Version 2)
Quarter: 2016Q1

REPORT INFORMATION
  Report Type: Spontaneous
  Country: GB (occurrence: GB)
  Receive Date: 20160301
  Receipt Date: 20160301
  Transmission Date: 20160526
  Serious: Yes (Other)
  Sender: FDA-Public Use
  Company Number: GB-WATSON-2016-03962

PATIENT
  Age: 49 Year
  Sex: Female

DRUGS (2)
  1. CARBOPLATIN (UNKNOWN) [Suspect]
     Active Substance: CARBOPLATIN
     Indication: OVARIAN CANCER
     Dosage: 5 DF, TOTAL
     Route: 065
     Dates: end: 2015
  2. PACLITAXEL (UNKNOWN) [Suspect]
     Active Substance: PACLITAXEL
     Indication: OVARIAN CANCER
     Dosage: UNK, CYCLICAL (RECEIVED 1 CYCLE)
     Route: 065
     Dates: end: 2015

REACTIONS (5)
  - Heart rate increased [Unknown]
  - Atrial fibrillation [Not Recovered/Not Resolved]
  - Palpitations [Recovered/Resolved]
  - Chest discomfort [Unknown]
  - Dizziness [Unknown]

NARRATIVE: CASE EVENT DATE: 2015
